FAERS Safety Report 17709514 (Version 1)
Quarter: 2020Q2

REPORT INFORMATION
  Report Type: Spontaneous
  Country: ES (occurrence: ES)
  Receive Date: 20200427
  Receipt Date: 20200427
  Transmission Date: 20200714
  Serious: Yes (Hospitalization, Other)
  Sender: FDA-Public Use
  Company Number: ES-LEADINGPHARMA-ES-2020LEALIT00060

PATIENT
  Age: 86 Year
  Sex: Female

DRUGS (2)
  1. FUROSEMIDE TABLETS USP [Suspect]
     Active Substance: FUROSEMIDE
     Indication: CARDIAC FAILURE CHRONIC
     Route: 058
  2. AMOXICILLIN CLAVULANIC ACID [Interacting]
     Active Substance: AMOXICILLIN\CLAVULANIC ACID
     Indication: CARDIAC FAILURE CHRONIC

REACTIONS (6)
  - Fall [Unknown]
  - Asthenia [Unknown]
  - Humerus fracture [Unknown]
  - Peau d^orange [Recovered/Resolved]
  - Discomfort [Unknown]
  - Off label use [Unknown]
